FAERS Safety Report 15010209 (Version 1)
Quarter: 2018Q2

REPORT INFORMATION
  Report Type: Spontaneous
  Country: US (occurrence: US)
  Receive Date: 20180614
  Receipt Date: 20180614
  Transmission Date: 20180711
  Serious: No
  Sender: FDA-Public Use
  Company Number: US-BAYER-2018-107972

PATIENT
  Age: 98 Year
  Sex: Female

DRUGS (1)
  1. MIRALAX [Suspect]
     Active Substance: POLYETHYLENE GLYCOL 3350
     Indication: GASTROINTESTINAL DISORDER
     Dosage: 1 DF, QD
     Route: 048
     Dates: end: 20180604

REACTIONS (7)
  - Incorrect drug administration duration [Unknown]
  - Drug ineffective [Unknown]
  - Constipation [Not Recovered/Not Resolved]
  - Infrequent bowel movements [Unknown]
  - Defaecation urgency [Not Recovered/Not Resolved]
  - Product prescribing issue [Unknown]
  - Dyschezia [Unknown]
